FAERS Safety Report 10219825 (Version 1)
Quarter: 2014Q1

REPORT INFORMATION
  Report Type: Spontaneous
  Country: US (occurrence: None)
  Receive Date: 20140306
  Receipt Date: 20140306
  Transmission Date: 20141002
  Serious: Yes (Other)
  Sender: FDA-Public Use
  Company Number: 163-21880-12062065

PATIENT
  Age: 83 Year
  Sex: Male

DRUGS (2)
  1. REVLIMID (LENALIDOMIDE) (10 MILLIGRAM, CAPSULES) [Suspect]
     Indication: MYELODYSPLASTIC SYNDROME
     Dosage: 10 MG,  21 IN 21 D, PO  02/12/2012 - UNKNOWN
     Route: 048
     Dates: start: 20120212
  2. FINASTERIDE (FINASTERIDE) [Concomitant]

REACTIONS (6)
  - Refractory anaemia with an excess of blasts [None]
  - Full blood count decreased [None]
  - Rash erythematous [None]
  - Rash macular [None]
  - Drug ineffective [None]
  - Rash [None]
